FAERS Safety Report 4583656-2 (Version None)
Quarter: 2005Q1

REPORT INFORMATION
  Report Type: 
  Country: None (occurrence: None)
  Receive Date: 20050211
  Receipt Date: 20050131
  Transmission Date: 20050727
  Serious: Yes (Other)
  Sender: FDA-Public Use
  Company Number: 211890

PATIENT

DRUGS (1)
  1. RITUXAN [Suspect]
     Dosage: 675 MG, INTRAVENOUS
     Route: 042

REACTIONS (1)
  - STOMATITIS [None]
